FAERS Safety Report 7701046-8 (Version None)
Quarter: 2011Q3

REPORT INFORMATION
  Report Type: 
  Country: None (occurrence: None)
  Receive Date: 20110817
  Receipt Date: 20110809
  Transmission Date: 20111222
  Serious: Yes (Death, Hospitalization)
  Sender: FDA-Public Use
  Company Number: JPI-P-001390

PATIENT
  Age: 79 Year
  Sex: Male

DRUGS (5)
  1. XYREM [Suspect]
     Indication: DYSSOMNIA
     Dosage: 7,9,4 GM 3.5 GM, 2 IN 1 D), ORAL
     Route: 048
     Dates: start: 20050601
  2. XYREM [Suspect]
     Indication: DYSSOMNIA
     Dosage: 7,9,4 GM 3.5 GM, 2 IN 1 D), ORAL
     Route: 048
     Dates: start: 20050713
  3. XYREM [Suspect]
     Indication: DYSSOMNIA
     Dosage: 7,9,4 GM 3.5 GM, 2 IN 1 D), ORAL
     Route: 048
     Dates: start: 20050926
  4. XYREM [Suspect]
     Indication: DYSSOMNIA
     Dosage: 7,9,4 GM 3.5 GM, 2 IN 1 D), ORAL
     Route: 048
     Dates: start: 20051228
  5. XYREM [Suspect]
     Indication: DYSSOMNIA
     Dosage: 7,9,4 GM 3.5 GM, 2 IN 1 D), ORAL
     Route: 048
     Dates: start: 20061109, end: 20070428

REACTIONS (4)
  - FALL [None]
  - POST PROCEDURAL COMPLICATION [None]
  - HIP FRACTURE [None]
  - GASTROINTESTINAL HAEMORRHAGE [None]
